FAERS Safety Report 21000038 (Version 1)
Quarter: 2022Q2

REPORT INFORMATION
  Report Type: Spontaneous
  Country: US (occurrence: US)
  Receive Date: 20220623
  Receipt Date: 20220623
  Transmission Date: 20220721
  Serious: Yes (Other)
  Sender: FDA-Public Use
  Company Number: US-BRISTOL-MYERS SQUIBB COMPANY-2022-058587

PATIENT
  Age: 52 Year
  Sex: Female

DRUGS (2)
  1. OPDIVO [Suspect]
     Active Substance: NIVOLUMAB
     Indication: Ovarian clear cell carcinoma
     Dosage: 126 MG EVERY 2 WEEKS
  2. YERVOY [Suspect]
     Active Substance: IPILIMUMAB
     Indication: Ovarian clear cell carcinoma
     Dosage: 42 MG  EVERY 6 WEEKS

REACTIONS (2)
  - Drug ineffective [Unknown]
  - Intentional product use issue [Unknown]
